FAERS Safety Report 11021246 (Version 5)
Quarter: 2015Q2

REPORT INFORMATION
  Report Type: Spontaneous
  Country: JP (occurrence: JP)
  Receive Date: 20150413
  Receipt Date: 20150608
  Transmission Date: 20150821
  Serious: Yes (Life-Threatening, Other)
  Sender: FDA-Public Use
  Company Number: JP-PFIZER INC-2015115990

PATIENT
  Age: 74 Year
  Sex: Female
  Weight: 41.5 kg

DRUGS (7)
  1. REMAPRIDE [Concomitant]
     Dosage: 100 MG, 3X/DAY
     Route: 048
     Dates: start: 20150204
  2. MAGLAX [Concomitant]
     Active Substance: MAGNESIUM OXIDE
     Dosage: 330 MG, 3X/DAY
     Route: 048
     Dates: start: 20150204
  3. PRIMPERAN [Concomitant]
     Active Substance: METOCLOPRAMIDE HYDROCHLORIDE
     Dosage: 5 MG, 3X/DAY
     Route: 048
     Dates: start: 20150204
  4. BROTIZOLAM [Concomitant]
     Active Substance: BROTIZOLAM
     Dosage: 0.25 MG, 1X/DAY
     Route: 048
     Dates: start: 20150204
  5. XALKORI [Suspect]
     Active Substance: CRIZOTINIB
     Indication: NON-SMALL CELL LUNG CANCER
     Dosage: 250 MG, 2X/DAY
     Route: 048
     Dates: start: 20150319, end: 20150402
  6. LOXOPROFEN SODIUM [Concomitant]
     Active Substance: LOXOPROFEN SODIUM
     Dosage: 60 MG, 3X/DAY
     Route: 048
     Dates: start: 20150204
  7. DAI-KENCHU-TO [Concomitant]
     Active Substance: MALTOSE
     Dosage: 2.5 MG, 3X/DAY
     Route: 048
     Dates: start: 20150330

REACTIONS (12)
  - Electrocardiogram QT prolonged [Recovered/Resolved]
  - Bradycardia [Not Recovered/Not Resolved]
  - Electrolyte imbalance [Recovered/Resolved]
  - Renal disorder [Unknown]
  - Cardiac failure [Recovering/Resolving]
  - Ejection fraction decreased [Not Recovered/Not Resolved]
  - Cardiomegaly [Recovered/Resolved]
  - Pleural effusion [Recovered/Resolved]
  - Visual impairment [Unknown]
  - Transvalvular pressure gradient [Unknown]
  - Liver disorder [Unknown]
  - Decreased appetite [Unknown]

NARRATIVE: CASE EVENT DATE: 201503
